FAERS Safety Report 8172430-6 (Version None)
Quarter: 2012Q1

REPORT INFORMATION
  Report Type: 
  Country: None (occurrence: None)
  Receive Date: 20120224
  Receipt Date: 20120224
  Transmission Date: 20120608
  Serious: No
  Sender: FDA-Public Use
  Company Number: None

PATIENT
  Sex: Male
  Weight: 69.5 kg

DRUGS (2)
  1. GEMCITABINE HYDROCHLORIDE [Suspect]
     Dosage: 4365 MG
  2. TARCEVA [Suspect]
     Dosage: 1400 MG

REACTIONS (2)
  - RASH [None]
  - NEUTROPENIC INFECTION [None]
